FAERS Safety Report 15672480 (Version 1)
Quarter: 2018Q4

REPORT INFORMATION
  Report Type: Spontaneous
  Country: DE (occurrence: DE)
  Receive Date: 20181129
  Receipt Date: 20181129
  Transmission Date: 20190205
  Serious: No
  Sender: FDA-Public Use
  Company Number: DE-TESAROUBC-2018-TSO0956-DE

PATIENT
  Age: 64 Year
  Sex: Female
  Weight: 56 kg

DRUGS (2)
  1. ZEJULA [Suspect]
     Active Substance: NIRAPARIB
     Dosage: 200 MG, UNK
     Dates: start: 20180712
  2. ZEJULA [Suspect]
     Active Substance: NIRAPARIB
     Indication: OVARIAN CANCER
     Dosage: 300 MG, UNK
     Dates: start: 20180618

REACTIONS (9)
  - Blood potassium increased [Recovered/Resolved]
  - Blood pressure increased [Recovered/Resolved]
  - Nausea [Recovered/Resolved]
  - Insomnia [Recovered/Resolved]
  - Heart rate increased [Recovered/Resolved]
  - Weight decreased [Recovered/Resolved]
  - Blood creatine increased [Recovered/Resolved]
  - Muscle spasms [Recovered/Resolved]
  - Vomiting [Recovered/Resolved]

NARRATIVE: CASE EVENT DATE: 20180628
